FAERS Safety Report 7210948-0 (Version None)
Quarter: 2011Q1

REPORT INFORMATION
  Report Type: 
  Country: None (occurrence: None)
  Receive Date: 20110105
  Receipt Date: 20101216
  Transmission Date: 20110831
  Serious: Yes (Congenital Anomaly)
  Sender: FDA-Public Use
  Company Number: A0871467A

PATIENT
  Sex: Female

DRUGS (1)
  1. PAXIL [Suspect]
     Dosage: 10MG UNKNOWN

REACTIONS (3)
  - CONGENITAL ANOMALY [None]
  - PERSISTENT FOETAL CIRCULATION [None]
  - DRUG EXPOSURE DURING PREGNANCY [None]
